FAERS Safety Report 9297541 (Version 1)
Quarter: 2013Q2

REPORT INFORMATION
  Report Type: Spontaneous
  Country: US (occurrence: US)
  Receive Date: 20130520
  Receipt Date: 20130520
  Transmission Date: 20140414
  Serious: Yes (Other)
  Sender: FDA-Public Use
  Company Number: US-009507513-1305USA010304

PATIENT
  Age: 4 Year
  Sex: Male

DRUGS (1)
  1. SINGULAIR [Suspect]
     Indication: MULTIPLE ALLERGIES
     Dosage: 1 DF, QD
     Route: 048

REACTIONS (5)
  - Anxiety [Unknown]
  - Anger [Unknown]
  - Agitation [Unknown]
  - Aggression [Unknown]
  - Abnormal behaviour [Unknown]
